FAERS Safety Report 5010312-9 (Version None)
Quarter: 2006Q2

REPORT INFORMATION
  Report Type: 
  Country: None (occurrence: None)
  Receive Date: 20060404
  Receipt Date: 20051206
  Transmission Date: 20061013
  Serious: No
  Sender: FDA-Public Use
  Company Number: US200512000992

PATIENT
  Age: 55 Year
  Sex: Female

DRUGS (6)
  1. CYMBALTA [Suspect]
     Indication: ANXIETY
     Dosage: 60 MG, DAILY (1/D), ORAL
     Route: 048
     Dates: start: 20051130, end: 20051130
  2. EVISTA [Concomitant]
  3. VITAMIN D [Concomitant]
  4. DARVOCET-N 100 [Concomitant]
  5. WELLBUTRIN [Concomitant]
  6. VITAMINS-MINERALS THERAPEUTIC (VITAMINS-MINERALS THERAPEUTIC UNKNOWN F [Concomitant]

REACTIONS (4)
  - HYPERPHAGIA [None]
  - INSOMNIA [None]
  - NAUSEA [None]
  - VOMITING [None]
